FAERS Safety Report 7409904-9 (Version None)
Quarter: 2011Q2

REPORT INFORMATION
  Report Type: 
  Country: None (occurrence: None)
  Receive Date: 20110412
  Receipt Date: 20110405
  Transmission Date: 20111010
  Serious: Yes (Hospitalization, Other)
  Sender: FDA-Public Use
  Company Number: US-ELI_LILLY_AND_COMPANY-US201102001157

PATIENT
  Sex: Female
  Weight: 136.96 kg

DRUGS (4)
  1. HUMULIN N [Suspect]
     Dosage: 18 U, OTHER
     Dates: start: 20010101
  2. HUMULIN N [Suspect]
     Dosage: 18 U, EACH EVENING
     Dates: start: 20010101
  3. HUMULIN N [Suspect]
     Indication: TYPE 2 DIABETES MELLITUS
     Dosage: 26 U, EACH MORNING
     Dates: start: 20010101
  4. NOVOLOG [Concomitant]

REACTIONS (3)
  - DEMENTIA ALZHEIMER'S TYPE [None]
  - KNEE ARTHROPLASTY [None]
  - OVERWEIGHT [None]
